FAERS Safety Report 4273179-2 (Version None)
Quarter: 2004Q1

REPORT INFORMATION
  Report Type: 
  Country: None (occurrence: None)
  Receive Date: 20040116
  Receipt Date: 20031217
  Transmission Date: 20041129
  Serious: Yes (Hospitalization)
  Sender: FDA-Public Use
  Company Number: PHHO2003US16450

PATIENT
  Age: 47 Year
  Sex: Female

DRUGS (14)
  1. ERL 080A [Suspect]
     Indication: RENAL TRANSPLANT
     Dosage: NOT REPORTED
     Route: 048
  2. AVANDIA [Concomitant]
  3. NPH ILETIN II [Concomitant]
  4. AVALIDE [Concomitant]
  5. CARDIZEM [Concomitant]
  6. CARDURA [Concomitant]
  7. TOPROL-XL [Concomitant]
  8. NEORAL [Suspect]
     Indication: RENAL TRANSPLANT
     Dosage: 75 MG, BID
     Route: 048
  9. NU-IRON [Concomitant]
  10. SODIUM BICARBONATE IN PLASTIC CONTAINER [Concomitant]
  11. LASIX [Concomitant]
  12. ALLEGRA [Concomitant]
  13. PREDNISONE [Suspect]
     Indication: RENAL TRANSPLANT
     Dosage: 7.5 MG, QD
     Route: 048
  14. PREDNISONE [Suspect]
     Dosage: 15 MG, QD
     Route: 048

REACTIONS (8)
  - ANAEMIA [None]
  - BLOOD CREATININE INCREASED [None]
  - BLOOD UREA INCREASED [None]
  - BRONCHITIS [None]
  - KIDNEY INFECTION [None]
  - METABOLIC ACIDOSIS [None]
  - PYELONEPHRITIS [None]
  - URINARY TRACT INFECTION [None]
